FAERS Safety Report 21364415 (Version 1)
Quarter: 2022Q3

REPORT INFORMATION
  Report Type: Other
  Country: DE (occurrence: DE)
  Receive Date: 20220922
  Receipt Date: 20220922
  Transmission Date: 20221026
  Serious: Yes (Death)
  Sender: FDA-Public Use
  Company Number: None

PATIENT
  Age: 79 Year
  Sex: Female

DRUGS (6)
  1. FETROJA [Suspect]
     Active Substance: CEFIDEROCOL SULFATE TOSYLATE
     Indication: Anti-infective therapy
     Dosage: UNK
     Route: 065
  2. LINEZOLID [Suspect]
     Active Substance: LINEZOLID
     Indication: Anti-infective therapy
     Dosage: UNK
     Route: 065
  3. COLISTIN [Suspect]
     Active Substance: COLISTIN
     Indication: Anti-infective therapy
     Route: 065
  4. MEROPENEM [Suspect]
     Active Substance: MEROPENEM
     Indication: Anti-infective therapy
     Dosage: UNK
     Route: 065
  5. AMPICILLIN [Suspect]
     Active Substance: AMPICILLIN
     Indication: Anti-infective therapy
     Dosage: UNK
     Route: 065
  6. GENTAMICIN [Suspect]
     Active Substance: GENTAMICIN
     Indication: Anti-infective therapy
     Dosage: UNK
     Route: 065

REACTIONS (3)
  - Septic shock [Fatal]
  - Multiple organ dysfunction syndrome [Fatal]
  - Pathogen resistance [Fatal]
